FAERS Safety Report 20708082 (Version 2)
Quarter: 2022Q2

REPORT INFORMATION
  Report Type: Spontaneous
  Country: JP (occurrence: JP)
  Receive Date: 20220414
  Receipt Date: 20220502
  Transmission Date: 20220721
  Serious: Yes (Other)
  Sender: FDA-Public Use
  Company Number: JP-TAKEDA-2021TUS064706

PATIENT
  Age: 10 Year
  Sex: Male

DRUGS (1)
  1. INTUNIV [Suspect]
     Active Substance: GUANFACINE HYDROCHLORIDE
     Indication: Attention deficit hyperactivity disorder
     Dosage: 2 MILLIGRAM, QD
     Route: 048
     Dates: start: 20201130, end: 20211109

REACTIONS (1)
  - Hyperprolactinaemia [Not Recovered/Not Resolved]

NARRATIVE: CASE EVENT DATE: 20210108
